FAERS Safety Report 8294107-9 (Version None)
Quarter: 2012Q2

REPORT INFORMATION
  Report Type: 
  Country: None (occurrence: None)
  Receive Date: 20120418
  Receipt Date: 20120410
  Transmission Date: 20120825
  Serious: Yes (Death, Other)
  Sender: FDA-Public Use
  Company Number: PHHY2012FR030557

PATIENT
  Sex: Male
  Weight: 83 kg

DRUGS (12)
  1. SANDIMMUNE [Suspect]
     Dosage: 250 MG, DAILY
     Route: 042
     Dates: start: 20120208, end: 20120217
  2. METHOTREXATE [Suspect]
     Dosage: 20 MG, UNK
     Dates: start: 20120212
  3. IRRADIATION [Concomitant]
     Dosage: 2 DF, BID
     Dates: start: 20120207
  4. MESNA [Concomitant]
     Dosage: 1245 MG, QID
     Dates: start: 20120204
  5. SANDIMMUNE [Suspect]
     Dosage: 100 MG, DAILY
     Route: 042
     Dates: start: 20120217, end: 20120221
  6. CYCLOPHOSPHAMIDE [Suspect]
     Dosage: 4980 MG, QD
     Dates: start: 20120203, end: 20120204
  7. MESNA [Concomitant]
     Dosage: 1245 MG, QID
     Dates: start: 20120205
  8. PROGRAF [Concomitant]
     Dosage: 7.5 MG, BID
     Dates: start: 20120221, end: 20120222
  9. METHOTREXATE [Suspect]
     Dosage: 30 MG, UNK
     Dates: start: 20120210
  10. IRRADIATION [Concomitant]
     Dosage: 2 DF, BID
     Dates: start: 20120206
  11. IRRADIATION [Concomitant]
     Dosage: 2 DF, BID
     Dates: start: 20120208
  12. MESNA [Concomitant]
     Dosage: 1245 MG, TID
     Dates: start: 20120203

REACTIONS (29)
  - ASCITES [None]
  - HEPATORENAL SYNDROME [None]
  - HEPATOMEGALY [None]
  - LUNG DISORDER [None]
  - SHOCK [None]
  - BONE MARROW FAILURE [None]
  - ARRHYTHMIA [None]
  - DIARRHOEA [None]
  - ANURIA [None]
  - DYSPNOEA [None]
  - HYPOGLYCAEMIA [None]
  - IMMUNOSUPPRESSANT DRUG LEVEL INCREASED [None]
  - CHOLESTASIS [None]
  - PORTAL HYPERTENSION [None]
  - RENAL FAILURE ACUTE [None]
  - CARDIOMEGALY [None]
  - HYPERTHERMIA [None]
  - HYPOXIA [None]
  - FLUID RETENTION [None]
  - MITRAL VALVE INCOMPETENCE [None]
  - SEPSIS [None]
  - VENOOCCLUSIVE LIVER DISEASE [None]
  - CYTOLYTIC HEPATITIS [None]
  - HEPATIC FAILURE [None]
  - SODIUM RETENTION [None]
  - HYPOTENSION [None]
  - ESCHERICHIA INFECTION [None]
  - THROMBOCYTOPENIA [None]
  - LACTIC ACIDOSIS [None]
